FAERS Safety Report 9431563 (Version 1)
Quarter: 2013Q3

REPORT INFORMATION
  Report Type: Spontaneous
  Country: US (occurrence: US)
  Receive Date: 20130731
  Receipt Date: 20130731
  Transmission Date: 20140515
  Serious: No
  Sender: FDA-Public Use
  Company Number: US-009507513-1307USA014565

PATIENT
  Sex: Female

DRUGS (2)
  1. PEG-INTRON [Suspect]
     Dosage: UNK
  2. REBETOL [Suspect]
     Dosage: UNK

REACTIONS (1)
  - Headache [Unknown]
